FAERS Safety Report 6295401-3 (Version None)
Quarter: 2009Q3

REPORT INFORMATION
  Report Type: 
  Country: None (occurrence: None)
  Receive Date: 20090803
  Receipt Date: 20090722
  Transmission Date: 20100115
  Serious: Yes (Other)
  Sender: FDA-Public Use
  Company Number: US-SANOFI-SYNTHELABO-A03200903229

PATIENT
  Sex: Female

DRUGS (3)
  1. AMBIEN [Suspect]
     Indication: COMPLETED SUICIDE
     Dosage: GROUND UP MIXTURE OF NUMEROUS PRESCRIPTION DRUGS THAT WAS PLACED IN FOOD
     Route: 048
     Dates: start: 20081218
  2. CODEINE [Suspect]
     Indication: SUICIDE ATTEMPT
     Dosage: GROUND UP MIXTURE OF NUMEROUS PRESCRIPTION DRUGS THAT WAS PLACED IN FOOD
     Route: 048
     Dates: start: 20081218
  3. MULTIPLE PRESCRIPTION DRUGS [Suspect]
     Indication: SUICIDE ATTEMPT
     Dosage: GROUND UP MIXTURE OF NUMEROUS PRESCRIPTION DRUGS THAT WAS PLACED IN FOOD
     Route: 048
     Dates: start: 20081218

REACTIONS (3)
  - HOMICIDE [None]
  - LOSS OF CONSCIOUSNESS [None]
  - MULTIPLE DRUG OVERDOSE INTENTIONAL [None]
